FAERS Safety Report 4673316-1 (Version None)
Quarter: 2005Q2

REPORT INFORMATION
  Report Type: 
  Country: None (occurrence: None)
  Receive Date: 20050525
  Receipt Date: 20050517
  Transmission Date: 20051028
  Serious: Yes (Death, Hospitalization)
  Sender: FDA-Public Use
  Company Number: ES-BRISTOL-MYERS SQUIBB COMPANY-12970901

PATIENT
  Age: 70 Year
  Sex: Female

DRUGS (2)
  1. PARAPLATIN [Suspect]
     Route: 042
     Dates: start: 20040512, end: 20040608
  2. TAXOL [Suspect]
     Route: 042
     Dates: start: 20040512, end: 20040628

REACTIONS (3)
  - DEATH [None]
  - GRANULOCYTOPENIA [None]
  - PYREXIA [None]
